FAERS Safety Report 6554440-5 (Version None)
Quarter: 2010Q1

REPORT INFORMATION
  Report Type: 
  Country: None (occurrence: None)
  Receive Date: 20100125
  Receipt Date: 20100125
  Transmission Date: 20100710
  Serious: Yes (Other)
  Sender: FDA-Public Use
  Company Number: None

PATIENT
  Sex: Female
  Weight: 58.514 kg

DRUGS (1)
  1. CLARITHROMYCIN [Suspect]
     Indication: SINUSITIS
     Dosage: 1-500MG TABLET EVERY 12 HOURS
     Dates: start: 20100119, end: 20100123

REACTIONS (1)
  - DIARRHOEA [None]
